FAERS Safety Report 7932196 (Version 5)
Quarter: 2013Q1

REPORT INFORMATION
  Report Type: Spontaneous
  Country: JP (occurrence: None)
  Receive Date: 20110418
  Receipt Date: 20130116
  Transmission Date: 20140127
  Serious: Yes (Hospitalization, Other)
  Sender: FDA-Public Use
  Company Number: JP-2011-10587

PATIENT
  Age: 68 Year
  Sex: Female
  Weight: 31.7 kg

DRUGS (9)
  1. SAMSCA [Suspect]
     Indication: CARDIAC FAILURE CONGESTIVE
     Route: 048
     Dates: start: 20110214, end: 20110218
  2. ITOROL (ISOSIRBIDE MONONITRATE) [Concomitant]
  3. LASIX [Concomitant]
  4. ALDACTONE [Concomitant]
  5. WARFARIN (WARFARIN POTASSIUM) [Concomitant]
  6. ARTIST (CARVEDILOL) [Concomitant]
  7. PIMOBENDAN (PIMOBENDAN) [Concomitant]
  8. DIART (AZOSEMIDE) [Concomitant]
  9. ENALAPRIL MALEATE [Concomitant]

REACTIONS (11)
  - Dehydration [None]
  - Blood urea increased [None]
  - Blood creatinine increased [None]
  - Thirst [None]
  - Brain natriuretic peptide increased [None]
  - Palpitations [None]
  - Asthenia [None]
  - Arrhythmia [None]
  - Malaise [None]
  - Fluid intake reduced [None]
  - Circulatory collapse [None]
